FAERS Safety Report 5846471-5 (Version None)
Quarter: 2008Q3

REPORT INFORMATION
  Report Type: 
  Country: None (occurrence: None)
  Receive Date: 20080815
  Receipt Date: 20080805
  Transmission Date: 20090109
  Serious: Yes (Hospitalization, Disabling)
  Sender: FDA-Public Use
  Company Number: FR-JNJFOC-20080802054

PATIENT
  Sex: Female

DRUGS (5)
  1. IXPRIM [Suspect]
     Indication: URINARY TRACT INFECTION
     Route: 048
  2. OFLOXACINE [Suspect]
     Route: 048
  3. OFLOXACINE [Suspect]
     Indication: URINARY TRACT INFECTION
     Route: 048
  4. PHLOROGLUCINOL [Suspect]
     Route: 048
  5. PHLOROGLUCINOL [Suspect]
     Indication: URINARY TRACT INFECTION
     Route: 048

REACTIONS (5)
  - ARTHRALGIA [None]
  - ASTHMATIC CRISIS [None]
  - GASTROINTESTINAL DISORDER [None]
  - HEADACHE [None]
  - OEDEMA PERIPHERAL [None]
